FAERS Safety Report 6041032-X (Version None)
Quarter: 2009Q1

REPORT INFORMATION
  Report Type: 
  Country: None (occurrence: None)
  Receive Date: 20090116
  Receipt Date: 20080730
  Transmission Date: 20090719
  Serious: No
  Sender: FDA-Public Use
  Company Number: US-BRISTOL-MYERS SQUIBB COMPANY-14282800

PATIENT
  Age: 60 Year
  Sex: Female
  Weight: 84 kg

DRUGS (2)
  1. ABILIFY [Suspect]
     Indication: BIPOLAR DISORDER
     Dosage: STARTED APPROXIMATELY 2 1/2 YRS AGO ABILIFY 15 MG
  2. LAMICTAL [Concomitant]

REACTIONS (1)
  - MUSCULOSKELETAL STIFFNESS [None]
